FAERS Safety Report 5883223-4 (Version None)
Quarter: 2008Q3

REPORT INFORMATION
  Report Type: 
  Country: None (occurrence: None)
  Receive Date: 20080915
  Receipt Date: 20080903
  Transmission Date: 20090109
  Serious: Yes (Other)
  Sender: FDA-Public Use
  Company Number: US-WYE-H05381608

PATIENT
  Sex: Female
  Weight: 62.65 kg

DRUGS (3)
  1. ADVIL [Suspect]
     Indication: ARTHRALGIA
     Dosage: 2 LIQUI-GELS X 1
     Route: 048
     Dates: start: 20080802, end: 20080802
  2. ADVIL [Suspect]
     Dosage: UNKNOWN
     Route: 048
  3. CALAN [Concomitant]
     Indication: HYPERTENSION
     Route: 048

REACTIONS (7)
  - ABDOMINAL DISTENSION [None]
  - ABDOMINAL PAIN UPPER [None]
  - DIZZINESS [None]
  - FLATULENCE [None]
  - HYPOKALAEMIA [None]
  - LOSS OF CONSCIOUSNESS [None]
  - PHARMACEUTICAL PRODUCT COMPLAINT [None]
